FAERS Safety Report 8423094-5 (Version None)
Quarter: 2012Q2

REPORT INFORMATION
  Report Type: 
  Country: None (occurrence: None)
  Receive Date: 20120608
  Receipt Date: 20120530
  Transmission Date: 20120825
  Serious: Yes (Other)
  Sender: FDA-Public Use
  Company Number: JP-BRISTOL-MYERS SQUIBB COMPANY-16673592

PATIENT
  Age: 55 Year
  Sex: Male

DRUGS (3)
  1. CISPLATIN [Suspect]
     Indication: GASTRIC CANCER
     Dosage: 2 COURSES
  2. HERCEPTIN [Suspect]
     Indication: GASTRIC CANCER
     Dosage: 2 COURSES
  3. CAPECITABINE [Suspect]
     Indication: GASTRIC CANCER
     Dosage: 2 COURSES

REACTIONS (1)
  - PULMONARY ARTERY THROMBOSIS [None]
